FAERS Safety Report 6392182-X (Version None)
Quarter: 2009Q4

REPORT INFORMATION
  Report Type: 
  Country: None (occurrence: None)
  Receive Date: 20091005
  Receipt Date: 20090924
  Transmission Date: 20100525
  Serious: Yes (Hospitalization, Other)
  Sender: FDA-Public Use
  Company Number: 2009SP027024

PATIENT
  Age: 52 Year
  Sex: Female

DRUGS (1)
  1. TEMOZOLOMIDE [Suspect]
     Indication: GLIOBLASTOMA

REACTIONS (6)
  - CEREBROSPINAL FLUID RESERVOIR PLACEMENT [None]
  - DIZZINESS [None]
  - DYSPHAGIA [None]
  - HAEMORRHAGE INTRACRANIAL [None]
  - NEOPLASM PROGRESSION [None]
  - POST PROCEDURAL COMPLICATION [None]
